FAERS Safety Report 5604504-5 (Version None)
Quarter: 2008Q1

REPORT INFORMATION
  Report Type: 
  Country: None (occurrence: None)
  Receive Date: 20080128
  Receipt Date: 20080123
  Transmission Date: 20080703
  Serious: Yes (Death, Other)
  Sender: FDA-Public Use
  Company Number: US-BRISTOL-MYERS SQUIBB COMPANY-14052518

PATIENT
  Sex: Female

DRUGS (1)
  1. IXEMPRA [Suspect]

REACTIONS (2)
  - DEATH [None]
  - PANCYTOPENIA [None]
